FAERS Safety Report 13582578 (Version 1)
Quarter: 2017Q2

REPORT INFORMATION
  Report Type: Spontaneous
  Country: US (occurrence: US)
  Receive Date: 20170525
  Receipt Date: 20170525
  Transmission Date: 20170830
  Serious: Yes (Hospitalization)
  Sender: FDA-Public Use
  Company Number: US-MALLINCKRODT-T201702202

PATIENT
  Sex: Male
  Weight: 100 kg

DRUGS (11)
  1. OMEGA 3 [Concomitant]
     Active Substance: OMEGA-3 FATTY ACIDS
     Dosage: 1000MG, 1 CAPSULE BID
     Route: 048
  2. KLONOPIN [Concomitant]
     Active Substance: CLONAZEPAM
     Dosage: 1 MG TABLET
     Route: 048
  3. GABLOFEN [Suspect]
     Active Substance: BACLOFEN
     Indication: MUSCLE SPASTICITY
     Dosage: 140 MCG/DAY
     Route: 037
  4. DALFAMPRIDINE [Concomitant]
     Active Substance: DALFAMPRIDINE
     Dosage: 10 MG, 1 TABLET,Q 12H
     Route: 048
  5. BENZONATATE. [Concomitant]
     Active Substance: BENZONATATE
     Dosage: 100 MG , TID
     Route: 048
  6. DIMETHYL FUMARATE [Concomitant]
     Active Substance: DIMETHYL FUMARATE
     Dosage: 240 MG CAPSULE, 1 CAPSULE BID
     Route: 048
  7. FLOMAX [Concomitant]
     Active Substance: TAMSULOSIN HYDROCHLORIDE
     Dosage: 0.4MG , 1 CAPSULE DAILY
     Route: 048
  8. BACLOFEN. [Concomitant]
     Active Substance: BACLOFEN
     Dosage: 10MG 1.5 TABLET TID
     Route: 048
  9. CALCIUM [Concomitant]
     Active Substance: CALCIUM
     Dosage: 180 MG - 5000 UNITS TTABLET, ONCE DAILY
     Route: 048
  10. ASPIRIN (E.C.) [Concomitant]
     Active Substance: ASPIRIN
     Dosage: 81 MG 1 TABLET
     Route: 048
  11. FLUOXETINE [Concomitant]
     Active Substance: FLUOXETINE HYDROCHLORIDE
     Dosage: 40 MG , 1 CAPSULE DAILY
     Route: 048

REACTIONS (17)
  - Disease progression [Unknown]
  - Decreased appetite [Unknown]
  - Hypoaesthesia [Unknown]
  - Vision blurred [Unknown]
  - Anger [Unknown]
  - Frustration tolerance decreased [Unknown]
  - Restlessness [Unknown]
  - Insomnia [Unknown]
  - Muscle spasticity [Unknown]
  - Gait disturbance [Unknown]
  - Drug ineffective [Unknown]
  - Snoring [Unknown]
  - Sensitivity to weather change [Unknown]
  - Paraesthesia [Unknown]
  - General physical health deterioration [Unknown]
  - Muscular weakness [Unknown]
  - Balance disorder [Unknown]
